FAERS Safety Report 18775463 (Version 1)
Quarter: 2021Q1

REPORT INFORMATION
  Report Type: Spontaneous
  Country: FR (occurrence: FR)
  Receive Date: 20210122
  Receipt Date: 20210122
  Transmission Date: 20210419
  Serious: Yes (Life-Threatening)
  Sender: FDA-Public Use
  Company Number: FR-ACCORD-215366

PATIENT
  Age: 6 Month
  Sex: Female

DRUGS (3)
  1. PROSTIGMIN [Suspect]
     Active Substance: NEOSTIGMINE BROMIDE
     Indication: MUSCULAR WEAKNESS
     Dosage: STRENGTH:0.5 MG/1 ML??0.5 MG 4 TIMES PER DAY FOR 48 H THEN 1 MG 4 TIMES PER DAY FOR 48 H
     Route: 042
     Dates: start: 20201202, end: 20201207
  2. ESOMEPRAZOLE/ESOMEPRAZOLE MAGNESIUM/ESOMEPRAZOLE SODIUM [Concomitant]
     Active Substance: ESOMEPRAZOLE
     Indication: GASTROOESOPHAGEAL REFLUX DISEASE
     Dosage: UNSPECIFIED
     Route: 048
     Dates: start: 202006, end: 20201126
  3. ATROPINE. [Suspect]
     Active Substance: ATROPINE
     Indication: MUSCULAR WEAKNESS
     Route: 042
     Dates: start: 20201202, end: 20201207

REACTIONS (3)
  - Gamma-glutamyltransferase increased [Recovered/Resolved]
  - Off label use [Unknown]
  - Transaminases increased [Recovering/Resolving]

NARRATIVE: CASE EVENT DATE: 20201211
